FAERS Safety Report 10147340 (Version 1)
Quarter: 2014Q2

REPORT INFORMATION
  Report Type: Spontaneous
  Country: US (occurrence: US)
  Receive Date: 20140501
  Receipt Date: 20140501
  Transmission Date: 20141212
  Serious: No
  Sender: FDA-Public Use
  Company Number: US-SA-2014SA015153

PATIENT
  Sex: Male

DRUGS (1)
  1. HECTOROL [Suspect]
     Indication: PRODUCT USED FOR UNKNOWN INDICATION
     Dosage: 4MCG/VIAL
     Route: 065
     Dates: start: 20131218

REACTIONS (2)
  - Chest pain [Unknown]
  - Dyspnoea [Unknown]
